FAERS Safety Report 5013288-3 (Version None)
Quarter: 2006Q2

REPORT INFORMATION
  Report Type: 
  Country: None (occurrence: None)
  Receive Date: 20060530
  Receipt Date: 20060517
  Transmission Date: 20061013
  Serious: Yes (Hospitalization)
  Sender: FDA-Public Use
  Company Number: PHBS2006IE07350

PATIENT
  Sex: Female

DRUGS (9)
  1. CYCLOSPORINE [Suspect]
     Indication: RENAL TRANSPLANT
     Dosage: 7.5 MG, BID
  2. ATGAM [Concomitant]
     Dosage: 5 MG/KG, QD
     Route: 042
  3. ATGAM [Concomitant]
     Dosage: 2.5 MG/KG, QD
     Route: 042
  4. GANCICLOVIR [Concomitant]
     Indication: ANTIVIRAL PROPHYLAXIS
     Dosage: 2.5 MG/KG, Q12H
     Route: 042
  5. ACYCLOVIR [Concomitant]
     Indication: ANTIVIRAL PROPHYLAXIS
     Dosage: 400 MG, QD
     Route: 048
  6. FLUCONAZOLE [Concomitant]
     Indication: ANTIVIRAL PROPHYLAXIS
     Dosage: 3 MG/KG/D
  7. SULFAMETHOXYPYRIDAZINE/TRIMETHOPRIM [Concomitant]
     Indication: ANTIBIOTIC PROPHYLAXIS
  8. AZATHIOPRINE [Concomitant]
     Dosage: 2 MG/KG/DAY
  9. PREDNISOLONE [Concomitant]
     Dosage: 5 MG ALTERNATE DAY

REACTIONS (11)
  - BASAL CELL CARCINOMA [None]
  - CANDIDIASIS [None]
  - DERMAL CYST [None]
  - DIABETIC KETOACIDOSIS [None]
  - DIARRHOEA [None]
  - HERPES SIMPLEX [None]
  - HYPERKALAEMIA [None]
  - HYPERKERATOSIS [None]
  - HYPERTENSION [None]
  - SKIN LESION EXCISION [None]
  - SKIN PAPILLOMA [None]
